FAERS Safety Report 9654338 (Version 5)
Quarter: 2014Q1

REPORT INFORMATION
  Report Type: Report from Study
  Country: JP (occurrence: JP)
  Receive Date: 20131029
  Receipt Date: 20140121
  Transmission Date: 20141002
  Serious: Yes (Hospitalization)
  Sender: FDA-Public Use
  Company Number: JP-ASTRAZENECA-2013SE75478

PATIENT
  Age: 22451 Day
  Sex: Male

DRUGS (20)
  1. AZD6140 [Suspect]
     Indication: CORONARY ARTERY DISEASE
     Route: 048
     Dates: start: 20111216, end: 20120126
  2. AZD6140 [Suspect]
     Indication: CORONARY ARTERY DISEASE
     Route: 048
     Dates: start: 20120413, end: 20120819
  3. AZD6140 [Suspect]
     Indication: CORONARY ARTERY DISEASE
     Route: 048
     Dates: start: 20121019, end: 20131007
  4. BAYASPIRIN [Suspect]
     Route: 048
     Dates: end: 20120126
  5. BAYASPIRIN [Suspect]
     Route: 048
     Dates: start: 20120202, end: 20120819
  6. BAYASPIRIN [Suspect]
     Route: 048
     Dates: start: 20120903, end: 20120912
  7. BAYASPIRIN [Suspect]
     Route: 048
     Dates: start: 20120915, end: 20131007
  8. BAYASPIRIN [Suspect]
     Route: 048
     Dates: start: 20131019
  9. RINDERON-VG [Concomitant]
     Indication: ECZEMA
     Route: 061
  10. TAKEPRON OD [Concomitant]
     Indication: PROPHYLAXIS AGAINST GASTROINTESTINAL ULCER
     Route: 048
     Dates: start: 20120915
  11. BASEN [Concomitant]
     Indication: TYPE 2 DIABETES MELLITUS
     Route: 048
     Dates: start: 20120923, end: 20131007
  12. BASEN [Concomitant]
     Indication: TYPE 2 DIABETES MELLITUS
     Route: 048
     Dates: start: 20131018
  13. MAGMITT [Concomitant]
     Indication: CONSTIPATION PROPHYLAXIS
     Route: 048
     Dates: start: 20120920
  14. DAIKENCHUTO [Concomitant]
     Indication: GASTROINTESTINAL MOTILITY DISORDER
     Route: 048
     Dates: start: 20120915
  15. OLMETEC [Concomitant]
     Indication: CARDIAC DISORDER
     Route: 048
     Dates: start: 20120915, end: 20131007
  16. OLMETEC [Concomitant]
     Indication: HYPERTENSION
     Route: 048
     Dates: start: 20120915, end: 20131007
  17. NIFEDIPINE CR [Concomitant]
     Indication: ARTERIOSPASM CORONARY
     Route: 048
     Dates: start: 20130626
  18. NIFEDIPINE CR [Concomitant]
     Indication: HYPERTENSION
     Route: 048
     Dates: start: 20130626
  19. NIKORANMART [Concomitant]
     Indication: ANGINA PECTORIS
     Route: 048
     Dates: start: 20120915
  20. SYMBICORT TURBUHALER [Concomitant]
     Indication: ASTHMA
     Route: 055
     Dates: start: 20120924

REACTIONS (1)
  - Diverticulum intestinal haemorrhagic [Recovered/Resolved]
